FAERS Safety Report 4934711-6 (Version None)
Quarter: 2006Q1

REPORT INFORMATION
  Report Type: 
  Country: None (occurrence: None)
  Receive Date: 20060307
  Receipt Date: 20050907
  Transmission Date: 20060701
  Serious: Yes (Hospitalization)
  Sender: FDA-Public Use
  Company Number: US-MERCK-0509USA00901

PATIENT
  Age: 81 Year
  Sex: Female
  Weight: 74 kg

DRUGS (2)
  1. VIOXX [Suspect]
     Indication: ARTHRITIS
     Route: 048
     Dates: start: 20010121, end: 20040808
  2. ATIVAN [Concomitant]
     Route: 065
     Dates: end: 20040801

REACTIONS (8)
  - ABDOMINAL PAIN [None]
  - ANAEMIA [None]
  - CEREBROVASCULAR ACCIDENT [None]
  - CONSTIPATION [None]
  - ESCHERICHIA INFECTION [None]
  - INFARCTION [None]
  - URINARY TRACT INFECTION [None]
  - UROSEPSIS [None]
